FAERS Safety Report 7789571-5 (Version None)
Quarter: 2011Q3

REPORT INFORMATION
  Report Type: 
  Country: None (occurrence: None)
  Receive Date: 20110930
  Receipt Date: 20110927
  Transmission Date: 20111222
  Serious: Yes (Death, Hospitalization, Other)
  Sender: FDA-Public Use
  Company Number: GB-JNJFOC-20110910961

PATIENT
  Age: 40 Year
  Sex: Male

DRUGS (1)
  1. RISPERDAL CONSTA [Suspect]
     Indication: PRODUCT USED FOR UNKNOWN INDICATION
     Dosage: START DATE: SEP/NOV 2010
     Route: 030
     Dates: start: 20100101

REACTIONS (4)
  - DRUG INEFFECTIVE [None]
  - SUICIDAL IDEATION [None]
  - SUICIDE ATTEMPT [None]
  - PULMONARY EMBOLISM [None]
